FAERS Safety Report 7683721-7 (Version None)
Quarter: 2011Q3

REPORT INFORMATION
  Report Type: 
  Country: None (occurrence: None)
  Receive Date: 20110815
  Receipt Date: 20110805
  Transmission Date: 20111222
  Serious: Yes (Other)
  Sender: FDA-Public Use
  Company Number: US-BAYER-2011-070028

PATIENT
  Sex: Female

DRUGS (1)
  1. MIRENA [Suspect]
     Indication: MENORRHAGIA
     Route: 015

REACTIONS (6)
  - HEADACHE [None]
  - BACK PAIN [None]
  - WEIGHT INCREASED [None]
  - CYSTITIS [None]
  - FATIGUE [None]
  - ACNE [None]
